FAERS Safety Report 6644816-X (Version None)
Quarter: 2010Q1

REPORT INFORMATION
  Report Type: 
  Country: None (occurrence: None)
  Receive Date: 20100322
  Receipt Date: 20100312
  Transmission Date: 20100710
  Serious: Yes (Other)
  Sender: FDA-Public Use
  Company Number: GXKR2010US03021

PATIENT
  Age: 40 Year
  Sex: Male
  Weight: 95 kg

DRUGS (2)
  1. TESTOSTERONE (NGX) [Suspect]
     Indication: MUSCLE BUILDING THERAPY
     Route: 030
  2. PROTEINS NOS W/VITAMINS NOS [Concomitant]
     Dosage: 5 PROTEIN SHAKES/DAY

REACTIONS (5)
  - DRUG ABUSE [None]
  - FOCAL SEGMENTAL GLOMERULOSCLEROSIS [None]
  - PROTEINURIA [None]
  - RENAL FAILURE [None]
  - RENAL FAILURE CHRONIC [None]
